FAERS Safety Report 12211310 (Version 1)
Quarter: 2016Q1

REPORT INFORMATION
  Report Type: Spontaneous
  Country: US (occurrence: None)
  Receive Date: 20160324
  Receipt Date: 20160324
  Transmission Date: 20160526
  Serious: Yes (Hospitalization)
  Sender: FDA-Public Use
  Company Number: None

PATIENT
  Age: 48 Year
  Sex: Female
  Weight: 60.8 kg

DRUGS (10)
  1. HUMULIN R [Concomitant]
     Active Substance: INSULIN HUMAN
  2. NADOLOL. [Concomitant]
     Active Substance: NADOLOL
  3. HARVONI [Suspect]
     Active Substance: LEDIPASVIR\SOFOSBUVIR
     Indication: HEPATITIS C
     Dosage: HARVONI 90/400 QD ORAL
     Route: 048
     Dates: start: 20150709, end: 20151223
  4. LASIX [Concomitant]
     Active Substance: FUROSEMIDE
  5. LACTULOSE. [Concomitant]
     Active Substance: LACTULOSE
  6. RIFAXAMIN [Concomitant]
  7. PROTONIX [Concomitant]
     Active Substance: PANTOPRAZOLE SODIUM
  8. POTASSIUM [Concomitant]
     Active Substance: POTASSIUM
  9. LEVEMIR [Concomitant]
     Active Substance: INSULIN DETEMIR
  10. ALDACTONE [Concomitant]
     Active Substance: SPIRONOLACTONE

REACTIONS (7)
  - Confusional state [None]
  - Nausea [None]
  - Abdominal pain lower [None]
  - Hepatic encephalopathy [None]
  - Asthenia [None]
  - Somnolence [None]
  - Constipation [None]

NARRATIVE: CASE EVENT DATE: 20150829
